FAERS Safety Report 9903197 (Version 1)
Quarter: 2014Q1

REPORT INFORMATION
  Report Type: Spontaneous
  Country: US (occurrence: US)
  Receive Date: 20140217
  Receipt Date: 20140217
  Transmission Date: 20141002
  Serious: No
  Sender: FDA-Public Use
  Company Number: US-ASTRAZENECA-2013SE74708

PATIENT
  Age: 28 Year
  Sex: Male

DRUGS (5)
  1. SEROQUEL [Suspect]
     Indication: SCHIZOPHRENIA
     Route: 048
  2. SEROQUEL [Suspect]
     Indication: SCHIZOPHRENIA
     Route: 048
     Dates: start: 20130917
  3. SEROQUEL [Suspect]
     Indication: SCHIZOPHRENIA
     Route: 048
  4. ATENOLOL [Suspect]
     Indication: PRODUCT USED FOR UNKNOWN INDICATION
     Dosage: UNKNOWN UNK
     Route: 048
  5. HALDOL [Concomitant]

REACTIONS (1)
  - Sedation [Unknown]
